FAERS Safety Report 7674662-X (Version None)
Quarter: 2011Q3

REPORT INFORMATION
  Report Type: 
  Country: None (occurrence: None)
  Receive Date: 20110810
  Receipt Date: 20110801
  Transmission Date: 20111222
  Serious: Yes (Other)
  Sender: FDA-Public Use
  Company Number: CH-ROCHE-794334

PATIENT

DRUGS (2)
  1. CAPECITABINE [Suspect]
     Indication: RECTAL CANCER
     Route: 065
  2. PANITUMUMAB [Suspect]
     Indication: RECTAL CANCER
     Route: 065

REACTIONS (5)
  - PALMAR-PLANTAR ERYTHRODYSAESTHESIA SYNDROME [None]
  - ANASTOMOTIC LEAK [None]
  - FATIGUE [None]
  - DIARRHOEA [None]
  - DERMATITIS ACNEIFORM [None]
